FAERS Safety Report 5444028-1 (Version None)
Quarter: 2007Q3

REPORT INFORMATION
  Report Type: 
  Country: None (occurrence: None)
  Receive Date: 20070831
  Receipt Date: 20070822
  Transmission Date: 20080115
  Serious: Yes (Hospitalization, Disabling)
  Sender: FDA-Public Use
  Company Number: TPA2007A01790

PATIENT

DRUGS (11)
  1. ACTOS [Suspect]
     Indication: TYPE 2 DIABETES MELLITUS
     Dosage: 45 MG, 1 IN 1 D, PER ORAL
     Route: 048
     Dates: start: 20030101, end: 20070801
  2. :BYETTA                              (DRUG USED IN DIABETES) (TABLETS) [Concomitant]
  3. COREG [Concomitant]
  4. LIPITOR [Concomitant]
  5. FUROSEMIDE [Concomitant]
  6. PLAVIX [Concomitant]
  7. OMEPRAZOLE [Concomitant]
  8. ZETIA [Concomitant]
  9. WELLBUTRIN [Concomitant]
  10. AMITRIPTYLINE HCL [Concomitant]
  11. TYLENOL                 (PARACETAMOL) (TABLET) [Concomitant]

REACTIONS (2)
  - CARDIAC DISORDER [None]
  - IMPLANTABLE DEFIBRILLATOR INSERTION [None]
